FAERS Safety Report 7564227-2 (Version None)
Quarter: 2011Q2

REPORT INFORMATION
  Report Type: 
  Country: None (occurrence: None)
  Receive Date: 20110622
  Receipt Date: 20110607
  Transmission Date: 20111010
  Serious: Yes (Other)
  Sender: FDA-Public Use
  Company Number: PHHY2011CA51387

PATIENT
  Sex: Female

DRUGS (1)
  1. ZOLEDRONIC ACID [Suspect]
     Indication: OSTEOPOROSIS
     Dates: start: 20110606

REACTIONS (8)
  - BODY TEMPERATURE INCREASED [None]
  - DIZZINESS [None]
  - HEART RATE INCREASED [None]
  - TREMOR [None]
  - ANXIETY [None]
  - ASTHENIA [None]
  - NAUSEA [None]
  - HYPERTENSION [None]
